FAERS Safety Report 9371925 (Version 1)
Quarter: 2013Q2

REPORT INFORMATION
  Report Type: Report from Study
  Country: US (occurrence: US)
  Receive Date: 20130627
  Receipt Date: 20130627
  Transmission Date: 20140414
  Serious: Yes (Death)
  Sender: FDA-Public Use
  Company Number: US-MYLANLABS-2012S1010508

PATIENT
  Age: 56 Year
  Sex: Male
  Weight: 78.93 kg

DRUGS (3)
  1. CLOZAPINE TABLETS [Suspect]
     Indication: SCHIZOPHRENIA
     Route: 048
     Dates: start: 20120424
  2. CYMBALTA [Concomitant]
  3. ATIVAN [Concomitant]

REACTIONS (2)
  - Completed suicide [Fatal]
  - Accidental death [Fatal]
